FAERS Safety Report 9825739 (Version 1)
Quarter: 2013Q4

REPORT INFORMATION
  Report Type: Spontaneous
  Country: US (occurrence: None)
  Receive Date: 20131028
  Receipt Date: 20131028
  Transmission Date: 20140711
  Serious: Yes (Other)
  Sender: FDA-Public Use
  Company Number: 2013US002351

PATIENT
  Age: 35 Year
  Sex: Male
  Weight: 110 kg

DRUGS (2)
  1. ICLUSIG [Suspect]
     Indication: CHRONIC MYELOID LEUKAEMIA
     Route: 048
     Dates: start: 20130717
  2. TUMS [Concomitant]

REACTIONS (4)
  - Swelling [None]
  - Blood pressure increased [None]
  - Rash [None]
  - Abdominal pain [None]
